FAERS Safety Report 7330154-9 (Version None)
Quarter: 2011Q1

REPORT INFORMATION
  Report Type: 
  Country: None (occurrence: None)
  Receive Date: 20110303
  Receipt Date: 20110225
  Transmission Date: 20110831
  Serious: Yes (Other)
  Sender: FDA-Public Use
  Company Number: US-US-EMD SERONO, INC.-7037938

PATIENT
  Sex: Female
  Weight: 122 kg

DRUGS (2)
  1. UNSPECIFIED MEDICATIONS [TOO MANY TO LIST] [Concomitant]
  2. REBIF [Suspect]
     Indication: MULTIPLE SCLEROSIS
     Route: 058
     Dates: start: 20041212

REACTIONS (5)
  - MUSCLE SPASMS [None]
  - VISION BLURRED [None]
  - PYREXIA [None]
  - TYPE 2 DIABETES MELLITUS [None]
  - FATIGUE [None]
